FAERS Safety Report 18290532 (Version 1)
Quarter: 2020Q3

REPORT INFORMATION
  Report Type: Spontaneous
  Country: NO (occurrence: NO)
  Receive Date: 20200921
  Receipt Date: 20200921
  Transmission Date: 20201103
  Serious: Yes (Other)
  Sender: FDA-Public Use
  Company Number: NO-ALLERGAN-2035763US

PATIENT
  Sex: Female

DRUGS (1)
  1. LEVONORGESTREL ? BP [Suspect]
     Active Substance: LEVONORGESTREL
     Indication: PRODUCT USED FOR UNKNOWN INDICATION
     Dosage: 52MG, AT AN INITIAL RELEASE RATE OF 20 MICROGRAMS/24 HOURS
     Route: 015

REACTIONS (3)
  - Drug ineffective [Unknown]
  - Maternal exposure during pregnancy [Unknown]
  - Pregnancy with contraceptive device [Unknown]
